FAERS Safety Report 10082136 (Version 1)
Quarter: 2014Q2

REPORT INFORMATION
  Report Type: Spontaneous
  Country: US (occurrence: US)
  Receive Date: 20140416
  Receipt Date: 20140416
  Transmission Date: 20141212
  Serious: No
  Sender: FDA-Public Use
  Company Number: US-TEVA-475872USA

PATIENT
  Age: 24 Year
  Sex: Female
  Weight: 64.47 kg

DRUGS (3)
  1. PARAGARD 380A [Suspect]
     Indication: CONTRACEPTION
     Route: 015
     Dates: start: 20140226, end: 20140402
  2. WARFARIN [Concomitant]
     Indication: THROMBOSIS
  3. MELOXICAM [Concomitant]
     Indication: MIGRAINE

REACTIONS (2)
  - Menorrhagia [Recovered/Resolved]
  - Device expulsion [Recovered/Resolved]
